FAERS Safety Report 8387630-X (Version None)
Quarter: 2012Q2

REPORT INFORMATION
  Report Type: 
  Country: None (occurrence: None)
  Receive Date: 20120525
  Receipt Date: 20120524
  Transmission Date: 20120825
  Serious: Yes (Death, Hospitalization, Other)
  Sender: FDA-Public Use
  Company Number: PHEH2009US18125

PATIENT
  Sex: Male

DRUGS (20)
  1. DOCUSATE [Concomitant]
  2. ARIXTRA [Concomitant]
  3. CHEMOTHERAPEUTICS [Concomitant]
  4. ZOMETA [Suspect]
     Route: 042
  5. FOLIC ACID [Concomitant]
     Dosage: 0.4 MG, QD
  6. PROCHLORPERAZINE [Concomitant]
     Dosage: 10 MG,
  7. VICODIN [Concomitant]
  8. DURAGESIC-100 [Concomitant]
     Dosage: 200 UG, UNK
  9. PERCOCET [Concomitant]
  10. ONDANSETRON [Concomitant]
     Dosage: 8 MG, BID
  11. FAMOTIDINE [Concomitant]
  12. ZOFRAN [Concomitant]
  13. DILAUDID [Concomitant]
  14. KEPPRA [Concomitant]
  15. TARCEVA [Concomitant]
  16. LOVENOX [Concomitant]
  17. ACETAMINOPHEN [Concomitant]
  18. ALBUTEROL SULFATE [Concomitant]
  19. DECADRON [Concomitant]
     Dosage: 4 MG, BID
  20. EMEND [Concomitant]

REACTIONS (55)
  - LYMPHADENOPATHY MEDIASTINAL [None]
  - PERICARDIAL EFFUSION [None]
  - DYSPNOEA [None]
  - PNEUMONIA [None]
  - HYDROCELE [None]
  - CONSTIPATION [None]
  - HYPERBILIRUBINAEMIA [None]
  - BRAIN OEDEMA [None]
  - LYMPHADENOPATHY [None]
  - LUNG SQUAMOUS CELL CARCINOMA STAGE UNSPECIFIED [None]
  - ANXIETY [None]
  - BACK PAIN [None]
  - MENTAL STATUS CHANGES [None]
  - HIATUS HERNIA [None]
  - NEPHROLITHIASIS [None]
  - NASAL CONGESTION [None]
  - PELVIC PAIN [None]
  - PULMONARY OEDEMA [None]
  - METASTASES TO CENTRAL NERVOUS SYSTEM [None]
  - ACUTE RESPIRATORY FAILURE [None]
  - EMOTIONAL DISTRESS [None]
  - INFECTION [None]
  - CONVULSION [None]
  - PATHOLOGICAL FRACTURE [None]
  - ABDOMINAL PAIN [None]
  - OVERDOSE [None]
  - RESPIRATORY DISTRESS [None]
  - SINUS TACHYCARDIA [None]
  - EROSIVE OESOPHAGITIS [None]
  - DIVERTICULUM INTESTINAL [None]
  - ASTHMA [None]
  - BONE LESION [None]
  - LUNG NEOPLASM MALIGNANT [None]
  - CYST [None]
  - DEFORMITY [None]
  - PULMONARY EMBOLISM [None]
  - SPINAL OSTEOARTHRITIS [None]
  - PLEURAL EFFUSION [None]
  - METASTASES TO LIVER [None]
  - METASTASES TO BONE [None]
  - ARTERIOSCLEROSIS CORONARY ARTERY [None]
  - BENIGN PROSTATIC HYPERPLASIA [None]
  - BRONCHIECTASIS [None]
  - DEEP VEIN THROMBOSIS [None]
  - PNEUMOTHORAX [None]
  - CHEST PAIN [None]
  - OSTEONECROSIS OF JAW [None]
  - INJURY [None]
  - PHYSICAL DISABILITY [None]
  - UPPER RESPIRATORY TRACT INFECTION [None]
  - HEPATIC LESION [None]
  - PYREXIA [None]
  - BRONCHOSTENOSIS [None]
  - PAIN [None]
  - BLADDER DISORDER [None]
